FAERS Safety Report 16486320 (Version 1)
Quarter: 2019Q2

REPORT INFORMATION
  Report Type: Spontaneous
  Country: US (occurrence: US)
  Receive Date: 20190517
  Receipt Date: 20190517
  Transmission Date: 20190711
  Serious: No
  Sender: FDA-Public Use
  Company Number: None

PATIENT
  Age: 61 Year
  Sex: Female

DRUGS (2)
  1. ENTYVIO [Suspect]
     Active Substance: VEDOLIZUMAB
     Indication: COLITIS ULCERATIVE
     Dosage: 300MG EVERY 8 WEEKS IV
     Route: 042
     Dates: start: 20180824
  2. ENTYVIO [Suspect]
     Active Substance: VEDOLIZUMAB
     Indication: COLITIS
     Dosage: 300MG EVERY 8 WEEKS IV
     Route: 042
     Dates: start: 20180824

REACTIONS (3)
  - Visual impairment [None]
  - Headache [None]
  - Confusional state [None]

NARRATIVE: CASE EVENT DATE: 201903
